FAERS Safety Report 21762860 (Version 3)
Quarter: 2024Q4

REPORT INFORMATION
  Report Type: Spontaneous
  Country: US (occurrence: US)
  Receive Date: 20221221
  Receipt Date: 20241215
  Transmission Date: 20250114
  Serious: No
  Sender: BIOGEN
  Company Number: US-BIOGEN-2022BI01176005

PATIENT
  Sex: Female

DRUGS (2)
  1. SPINRAZA [Suspect]
     Active Substance: NUSINERSEN
     Indication: Spinal muscular atrophy
     Dosage: TOTAL DOSES RECEIVED 14
     Route: 050
     Dates: start: 20200930, end: 20240521
  2. SPINRAZA [Suspect]
     Active Substance: NUSINERSEN
     Route: 050
     Dates: start: 20200930, end: 20240920

REACTIONS (3)
  - Hypersomnia [Unknown]
  - Arthritis [Unknown]
  - Spinal muscular atrophy [Unknown]
